FAERS Safety Report 7046999-9 (Version None)
Quarter: 2010Q4

REPORT INFORMATION
  Report Type: 
  Country: None (occurrence: None)
  Receive Date: 20101015
  Receipt Date: 20101011
  Transmission Date: 20110411
  Serious: Yes (Hospitalization, Other)
  Sender: FDA-Public Use
  Company Number: US-GENZYME-CERZ-1001506

PATIENT

DRUGS (5)
  1. CEREZYME [Suspect]
     Indication: GAUCHER'S DISEASE
     Dosage: 4200 U, Q2W
     Route: 042
     Dates: start: 19961101
  2. TOPAMAX [Concomitant]
     Indication: MIGRAINE
     Dosage: 25 MG, UNK
     Route: 065
     Dates: start: 20060101
  3. GLYCOPYRROLATE [Concomitant]
     Indication: IRRITABLE BOWEL SYNDROME
     Dosage: 2 MG, UNK
     Route: 065
     Dates: start: 20060101
  4. LORTAB [Concomitant]
     Indication: PAIN
     Dosage: UNK
     Route: 065
     Dates: start: 20060101
  5. IBUPROFEN [Concomitant]
     Indication: PAIN
     Dosage: 800 MG, UNK
     Route: 065
     Dates: start: 20060101

REACTIONS (2)
  - APPENDICITIS [None]
  - DYSFUNCTIONAL UTERINE BLEEDING [None]
